FAERS Safety Report 9223034 (Version 3)
Quarter: 2014Q4

REPORT INFORMATION
  Report Type: Spontaneous
  Country: US (occurrence: US)
  Receive Date: 20130410
  Receipt Date: 20141114
  Transmission Date: 20150529
  Serious: Yes (Hospitalization, Other)
  Sender: FDA-Public Use
  Company Number: US-BAYER-2013-045127

PATIENT
  Age: 26 Year
  Sex: Female

DRUGS (24)
  1. YAZ [Suspect]
     Active Substance: DROSPIRENONE\ETHINYL ESTRADIOL
     Dosage: UNK
     Dates: start: 2008, end: 2009
  2. LEVAQUIN [Concomitant]
     Active Substance: LEVOFLOXACIN
  3. NICODERM CQ [Concomitant]
     Active Substance: NICOTINE
  4. YASMIN [Suspect]
     Active Substance: DROSPIRENONE\ETHINYL ESTRADIOL
  5. OCELLA [Suspect]
     Active Substance: DROSPIRENONE\ETHINYL ESTRADIOL
  6. APAP [Concomitant]
     Active Substance: ACETAMINOPHEN
     Dosage: 300-30 MG
  7. OCELLA [Suspect]
     Active Substance: DROSPIRENONE\ETHINYL ESTRADIOL
     Dosage: UNK
     Dates: start: 2008, end: 2009
  8. KLONOPIN [Concomitant]
     Active Substance: CLONAZEPAM
     Dosage: 2 MG 2 TIMES A DAY AND 1 MG AT BEDTIME
     Route: 048
  9. HOMATROPINE [Concomitant]
     Active Substance: HOMATROPINE\HOMATROPINE HYDROBROMIDE
     Dosage: 5 MG, UNK
     Dates: start: 20050318
  10. LORAZEPAM. [Concomitant]
     Active Substance: LORAZEPAM
     Dosage: 2 MG, UNK
     Dates: start: 20050318
  11. YASMIN [Suspect]
     Active Substance: DROSPIRENONE\ETHINYL ESTRADIOL
     Dosage: UNK
     Dates: start: 2008, end: 2009
  12. ALBUTEROL. [Concomitant]
     Active Substance: ALBUTEROL
  13. YAZ [Suspect]
     Active Substance: DROSPIRENONE\ETHINYL ESTRADIOL
  14. TRAZODONE HYDROCHLORIDE. [Concomitant]
     Active Substance: TRAZODONE HYDROCHLORIDE
     Dosage: 100 MG, UNK
  15. ATROVENT [Concomitant]
     Active Substance: IPRATROPIUM BROMIDE
  16. PERCOCET [Concomitant]
     Active Substance: ACETAMINOPHEN\OXYCODONE HYDROCHLORIDE
  17. DILAUDID [Concomitant]
     Active Substance: HYDROMORPHONE HYDROCHLORIDE
     Indication: PAIN
  18. ERYTHROMYCIN ETHYLSUCCINATE. [Concomitant]
     Active Substance: ERYTHROMYCIN ETHYLSUCCINATE
     Dosage: 400 MG, UNK
     Dates: start: 20050318
  19. CLONAZEPAM. [Concomitant]
     Active Substance: CLONAZEPAM
  20. CEPACOL [Concomitant]
     Active Substance: BENZOCAINE
  21. ORTHO TRICYCLEN [Concomitant]
     Dosage: UNK
     Dates: start: 20050503
  22. HOMATROPINE [Concomitant]
     Active Substance: HOMATROPINE\HOMATROPINE HYDROBROMIDE
     Dosage: 1.5 MG, UNK
     Dates: start: 20050318
  23. SOMA [Concomitant]
     Active Substance: CARISOPRODOL
     Dosage: 350 MG, TID
     Route: 048
  24. SEROQUEL [Concomitant]
     Active Substance: QUETIAPINE FUMARATE
     Dosage: 100 MG E TIMES A DAY AND 300 MG ONCE A DAY AT BEDTIME
     Route: 048

REACTIONS (11)
  - Pulmonary embolism [Recovered/Resolved]
  - Pain [None]
  - General physical health deterioration [Recovered/Resolved]
  - Pain [Recovered/Resolved]
  - Emotional distress [None]
  - Anxiety [None]
  - Pulmonary embolism [Recovered/Resolved]
  - Deep vein thrombosis [Recovered/Resolved]
  - Injury [Recovered/Resolved]
  - Thrombosis [None]
  - Abdominal pain [None]

NARRATIVE: CASE EVENT DATE: 20050503
